FAERS Safety Report 7015485-4 (Version None)
Quarter: 2010Q3

REPORT INFORMATION
  Report Type: 
  Country: None (occurrence: None)
  Receive Date: 20100922
  Receipt Date: 20100915
  Transmission Date: 20110219
  Serious: Yes (Other)
  Sender: FDA-Public Use
  Company Number: 2010SP049727

PATIENT
  Sex: Female

DRUGS (2)
  1. CERAZETTE (DESOGESTREL /00754001/) [Suspect]
     Indication: PRODUCT USED FOR UNKNOWN INDICATION
  2. COMBINED ORAL CONTRACEPTIVE (NOS) [Concomitant]

REACTIONS (1)
  - PULMONARY EMBOLISM [None]
